FAERS Safety Report 6814677 (Version 4)
Quarter: 2012Q4

REPORT INFORMATION
  Report Type: Report from Study
  Country: GB (occurrence: US)
  Receive Date: 20081118
  Receipt Date: 20121223
  Transmission Date: 20130627
  Serious: Yes (Hospitalization)
  Sender: FDA-Public Use
  Company Number: US-BRISTOL-MYERS SQUIBB COMPANY-14403687

PATIENT
  Age: 64 Year
  Sex: Female

DRUGS (5)
  1. IXABEPILONE [Suspect]
     Indication: BREAST CANCER METASTATIC
     Route: 042
     Dates: start: 20081010, end: 20081010
  2. CAPECITABINE [Suspect]
     Indication: BREAST CANCER METASTATIC
     Route: 048
     Dates: start: 20081010, end: 20081019
  3. POTASSIUM CHLORIDE [Concomitant]
     Route: 048
     Dates: start: 20081103
  4. LEVOXYL [Concomitant]
     Route: 048
     Dates: start: 1978
  5. ZOMETA [Concomitant]
     Route: 042
     Dates: start: 20070110

REACTIONS (3)
  - Electrolyte imbalance [Recovered/Resolved]
  - Hypoalbuminaemia [Recovered/Resolved]
  - Oedema peripheral [Recovered/Resolved]
